FAERS Safety Report 17072481 (Version 1)
Quarter: 2019Q4

REPORT INFORMATION
  Report Type: Spontaneous
  Country: US (occurrence: US)
  Receive Date: 20191124
  Receipt Date: 20191124
  Transmission Date: 20200122
  Serious: No
  Sender: FDA-Public Use
  Company Number: None

PATIENT
  Age: 68 Year
  Sex: Female
  Weight: 76.5 kg

DRUGS (15)
  1. GLUCOSAMINE 2500MG [Concomitant]
  2. COLLAGEN 100MG [Concomitant]
  3. FLUTICASONE PROP 5 MCG SPRAY [Concomitant]
  4. PINEAPPLE JUICE [Concomitant]
  5. HYALURONIC ACID [Concomitant]
     Active Substance: HYALURONIC ACID
  6. HYALURONIC ACID [Concomitant]
     Active Substance: HYALURONIC ACID
  7. BUSPIRONE 30 MG 2X DAILY [Concomitant]
  8. ATORVASTATIN 10 MG 1X DAILY [Concomitant]
  9. TOLCYLEN ANTIFUNGAL SOLUTION [Suspect]
     Active Substance: TOLNAFTATE
     Indication: ONYCHOMYCOSIS
     Dosage: ?          QUANTITY:1 DROP(S);OTHER ROUTE:BUILT IN BRUSH APPLICATOR?
     Dates: start: 20190822, end: 20191025
  10. BUPROPRIAN 300 MG [Concomitant]
  11. PROLENSA 0,07% EYE DROPS [Concomitant]
  12. GINKGO BILOBA WITH VINPOCETINE 120MG 1X FLEX ES BY ENIVA JOINTS AND BODY SUPPLEMENT30 OZ DAILY [Concomitant]
  13. BEET ROOT [Concomitant]
  14. WHITE WILLOW EXTRACT 30 OZ 1XDAILY [Concomitant]
  15. CHONDROITIN SULFATE 1200MG [Concomitant]

REACTIONS (1)
  - Alopecia [None]

NARRATIVE: CASE EVENT DATE: 20190920
